FAERS Safety Report 8559524-8 (Version None)
Quarter: 2012Q3

REPORT INFORMATION
  Report Type: 
  Country: None (occurrence: None)
  Receive Date: 20120802
  Receipt Date: 20120723
  Transmission Date: 20120928
  Serious: Yes (Hospitalization, Other)
  Sender: FDA-Public Use
  Company Number: US-BAYER-2012-032585

PATIENT
  Age: 30 Year
  Sex: Female
  Weight: 122.45 kg

DRUGS (32)
  1. YAZ [Suspect]
  2. PRILOSEC [Concomitant]
     Dosage: UNK UNK, PRN
     Dates: start: 20100522
  3. NSAID'S [Concomitant]
     Dosage: UNK
     Dates: start: 20100522
  4. LUNESTA [Concomitant]
     Dosage: 3 MG, HS
  5. PROVERA [Concomitant]
     Dosage: 10 MG, UNK
  6. MUCINEX [Concomitant]
  7. SAVELLA [Concomitant]
     Dosage: 50 MG, BID
  8. SAVELLA [Concomitant]
     Dosage: 100 MG, BID
  9. LIBRIUM [Concomitant]
     Indication: SLEEP DISORDER
  10. SOMA [Concomitant]
     Indication: MUSCLE RELAXANT THERAPY
     Dosage: 350 MG, QHS MAY USE UP TO TID PRN
     Dates: start: 20100405
  11. PEPCID [Concomitant]
     Dosage: 20 MG, UNK
     Route: 048
     Dates: start: 20100416
  12. IBUPROFEN [Concomitant]
     Dosage: 800 MG, EVERY 8 HOURS AS NEEDED
  13. ANCEF [Concomitant]
     Dosage: 2 G, UNK
     Dates: start: 20100416
  14. METRONIDAZOLE [Concomitant]
     Dosage: 500 MG, BID
  15. HYDROCODONE BITARTRATE AND ACETAMINOPHEN [Concomitant]
     Indication: PAIN
     Dosage: 5MG/500MG, 1 TO 2 TABLETS EVERY 4 TO 6 HOURS AS NEEDED
  16. HYDROXYZINE [Concomitant]
     Dosage: 25 MG, UNK
  17. ZITHROMAX [Concomitant]
  18. MOTRIN [Concomitant]
     Dosage: 400 MG, TID
     Dates: start: 20100405
  19. MIDAZOLAM [Concomitant]
     Indication: SIGMOIDOSCOPY
     Dosage: 2.5 MG, UNK
     Route: 042
     Dates: start: 20100526
  20. GABAPENTIN [Concomitant]
     Dosage: 400 MG, TID
  21. CHLORDIAZEPOXIDE HYDROCHLORIDE [Concomitant]
     Dosage: 25 MG, QHS PRN
  22. YAZ [Suspect]
     Indication: AMENORRHOEA
     Dosage: UNK
     Dates: start: 20100420, end: 20100601
  23. TORADOL [Concomitant]
     Dosage: 30 MG, UNK
     Route: 042
     Dates: start: 20100414
  24. VICODIN [Concomitant]
     Dosage: UNK
     Dates: start: 20100522
  25. TUSSIONEX [Concomitant]
  26. LYRICA [Concomitant]
  27. GABAPENTIN [Concomitant]
     Dosage: 300 MG, UNK
  28. CENTRUM [Concomitant]
     Dosage: 1 DF, QD
  29. ZOFRAN [Concomitant]
     Dosage: 4 MG, UNK
     Route: 042
     Dates: start: 20100414
  30. FENTANYL CITRATE [Concomitant]
     Indication: SIGMOIDOSCOPY
     Dosage: 75 MG, UNK
     Route: 042
     Dates: start: 20100526
  31. NORCO [Concomitant]
     Indication: PAIN
  32. METFORMIN HYDROCHLORIDE [Concomitant]
     Dosage: 250 MG, UNK

REACTIONS (11)
  - PAIN [None]
  - GENERAL PHYSICAL HEALTH DETERIORATION [None]
  - CEREBROVASCULAR ACCIDENT [None]
  - EMOTIONAL DISTRESS [None]
  - ANXIETY [None]
  - STRESS [None]
  - NEUROPATHY PERIPHERAL [None]
  - INJURY [None]
  - LOSS OF CONSCIOUSNESS [None]
  - DYSPNOEA [None]
  - PULMONARY EMBOLISM [None]
